FAERS Safety Report 6239795-3 (Version None)
Quarter: 2009Q2

REPORT INFORMATION
  Report Type: 
  Country: None (occurrence: None)
  Receive Date: 20090623
  Receipt Date: 20090618
  Transmission Date: 20091009
  Serious: Yes (Death)
  Sender: FDA-Public Use
  Company Number: JP-BRISTOL-MYERS SQUIBB COMPANY-14629760

PATIENT
  Age: 67 Year
  Sex: Male
  Weight: 57 kg

DRUGS (12)
  1. ERBITUX [Suspect]
     Indication: COLON CANCER
     Dosage: (200MG/M2) 11MAY09-11MAY09
     Route: 042
     Dates: start: 20090427, end: 20090427
  2. IRINOTECAN HCL [Concomitant]
     Indication: COLON CANCER
     Dosage: FIRST INFUSION-27APR09, 150MG IV 1IN1WK
     Route: 042
     Dates: start: 20090427, end: 20090511
  3. DIPHENHYDRAMINE HCL [Concomitant]
     Indication: PREMEDICATION
     Route: 048
  4. DECADRON [Concomitant]
     Indication: PREMEDICATION
     Route: 042
     Dates: start: 20090427, end: 20090511
  5. SEROTONE [Concomitant]
     Indication: ANTIEMETIC SUPPORTIVE CARE
     Route: 042
     Dates: start: 20090427, end: 20090511
  6. NOVAMIN [Concomitant]
     Indication: ANTIEMETIC SUPPORTIVE CARE
     Dosage: TABS
     Route: 048
     Dates: start: 20090509
  7. CALONAL [Concomitant]
     Indication: CANCER PAIN
     Dosage: 330 + 200MG, TABS.
     Route: 048
     Dates: start: 20090508
  8. KADIAN [Concomitant]
     Indication: CANCER PAIN
     Dosage: CAPS.
     Route: 048
     Dates: start: 20090406
  9. TAKEPRON [Concomitant]
     Indication: REFLUX OESOPHAGITIS
     Route: 048
  10. AMLODIPINE [Concomitant]
     Indication: HYPERTENSION
     Dosage: TABS
     Route: 048
  11. AMOBAN [Concomitant]
     Indication: INSOMNIA
     Dosage: TABS
     Route: 048
  12. NABOAL [Concomitant]
     Indication: PAIN
     Dosage: SR(CAPS)
     Route: 048
     Dates: start: 20090406

REACTIONS (4)
  - ACUTE RESPIRATORY DISTRESS SYNDROME [None]
  - DISSEMINATED INTRAVASCULAR COAGULATION [None]
  - PNEUMONIA [None]
  - SEPSIS [None]
